FAERS Safety Report 5796422-7 (Version None)
Quarter: 2008Q3

REPORT INFORMATION
  Report Type: 
  Country: None (occurrence: None)
  Receive Date: 20080701
  Receipt Date: 20080627
  Transmission Date: 20090109
  Serious: Yes (Other)
  Sender: FDA-Public Use
  Company Number: B0519157A

PATIENT
  Sex: Female

DRUGS (2)
  1. NIQUITIN 2MG [Suspect]
     Indication: SMOKING CESSATION THERAPY
     Dosage: 14LOZ PER DAY
     Route: 002
     Dates: start: 20060917
  2. LORAZEPAM [Concomitant]

REACTIONS (2)
  - ANXIETY [None]
  - DEPENDENCE [None]
